FAERS Safety Report 16263393 (Version 2)
Quarter: 2019Q2

REPORT INFORMATION
  Report Type: Spontaneous
  Country: US (occurrence: US)
  Receive Date: 20190502
  Receipt Date: 20190505
  Transmission Date: 20190711
  Serious: No
  Sender: FDA-Public Use
  Company Number: US-JNJFOC-20190409680

PATIENT
  Age: 74 Year
  Sex: Female
  Weight: 63.5 kg

DRUGS (6)
  1. SINGULAIR [Concomitant]
     Active Substance: MONTELUKAST SODIUM
     Indication: NASAL DECONGESTION THERAPY
     Route: 065
  2. ALLEGRA [Concomitant]
     Active Substance: FEXOFENADINE HYDROCHLORIDE
     Indication: MULTIPLE ALLERGIES
     Route: 065
  3. SINGULAIR [Concomitant]
     Active Substance: MONTELUKAST SODIUM
     Indication: MULTIPLE ALLERGIES
     Route: 065
  4. TYLENOL REGULAR STRENGTH [Suspect]
     Active Substance: ACETAMINOPHEN
     Indication: HEADACHE
     Dosage: JUST 1 TABLET AND A 2ND ONE IF NEEDED NO MORE THAN A COUPLE DOSES A MONTH
     Route: 048
     Dates: start: 20190330
  5. TYLENOL REGULAR STRENGTH [Suspect]
     Active Substance: ACETAMINOPHEN
     Indication: EAR PAIN
     Dosage: JUST 1 TABLET AND A 2ND ONE IF NEEDED NO MORE THAN A COUPLE DOSES A MONTH
     Route: 048
     Dates: start: 20190330
  6. ALLEGRA [Concomitant]
     Active Substance: FEXOFENADINE HYDROCHLORIDE
     Indication: NASAL DECONGESTION THERAPY
     Route: 065

REACTIONS (3)
  - Incorrect dose administered [Unknown]
  - Skin atrophy [Recovered/Resolved]
  - Contusion [Recovering/Resolving]

NARRATIVE: CASE EVENT DATE: 20190330
